FAERS Safety Report 16764367 (Version 7)
Quarter: 2020Q3

REPORT INFORMATION
  Report Type: Report from Study
  Country: CO (occurrence: CO)
  Receive Date: 20190902
  Receipt Date: 20200630
  Transmission Date: 20201105
  Serious: Yes (Life-Threatening, Hospitalization, Other)
  Sender: FDA-Public Use
  Company Number: PHHY2017CO168950

PATIENT
  Age: 56 Year
  Sex: Male
  Weight: 74 kg

DRUGS (11)
  1. REVOLADE [Suspect]
     Active Substance: ELTROMBOPAG
     Dosage: 100 MG, QD
     Route: 048
     Dates: start: 201810
  2. FLUCONAZOLE. [Concomitant]
     Active Substance: FLUCONAZOLE
     Indication: FUNGAL INFECTION
     Dosage: UNK
     Route: 048
  3. ACYCLOVIR. [Concomitant]
     Active Substance: ACYCLOVIR
     Indication: VIRAL INFECTION
  4. ACYCLOVIR. [Concomitant]
     Active Substance: ACYCLOVIR
     Indication: FUNGAL INFECTION
     Dosage: UNK
     Route: 048
  5. CYCLOSPORINE. [Suspect]
     Active Substance: CYCLOSPORINE
     Dosage: 125 MG, BID
     Route: 048
     Dates: start: 201705
  6. DEFERASIROX. [Suspect]
     Active Substance: DEFERASIROX
     Indication: IRON OVERLOAD
     Dosage: UNK
     Route: 065
  7. REVOLADE [Suspect]
     Active Substance: ELTROMBOPAG
     Indication: APLASTIC ANAEMIA
     Dosage: 100 MG, QD
     Route: 048
     Dates: start: 20171004
  8. JADENU [Suspect]
     Active Substance: DEFERASIROX
     Indication: APLASTIC ANAEMIA
     Dosage: 720 MG, Q24H
     Route: 048
  9. FLUCONAZOLE. [Concomitant]
     Active Substance: FLUCONAZOLE
     Indication: VIRAL INFECTION
  10. CYCLOSPORINE. [Suspect]
     Active Substance: CYCLOSPORINE
     Indication: APLASTIC ANAEMIA
     Dosage: 125 MG, Q12H
     Route: 048
     Dates: start: 201701
  11. CYCLOSPORINE. [Suspect]
     Active Substance: CYCLOSPORINE
     Dosage: 125 MG, Q12H
     Route: 048
     Dates: start: 2017

REACTIONS (19)
  - Asthenia [Unknown]
  - Haemolysis [Unknown]
  - Concomitant disease aggravated [Unknown]
  - Pancytopenia [Unknown]
  - Haemoglobin abnormal [Unknown]
  - Serum ferritin increased [Unknown]
  - Nephropathy toxic [Unknown]
  - Thrombocytopenic purpura [Unknown]
  - Platelet count increased [Unknown]
  - Vitamin B12 deficiency [Unknown]
  - Product use in unapproved indication [Unknown]
  - Serum ferritin decreased [Unknown]
  - Paroxysmal nocturnal haemoglobinuria [Unknown]
  - Embolism [Unknown]
  - Calculus bladder [Unknown]
  - Platelet count decreased [Unknown]
  - Muscle disorder [Unknown]
  - Mobility decreased [Unknown]
  - Cholelithiasis [Unknown]

NARRATIVE: CASE EVENT DATE: 2017
